FAERS Safety Report 8852591 (Version 2)
Quarter: 2020Q4

REPORT INFORMATION
  Report Type: Other
  Country: DE (occurrence: DE)
  Receive Date: 20121022
  Receipt Date: 20201228
  Transmission Date: 20210114
  Serious: Yes (Death, Hospitalization)
  Sender: FDA-Public Use
  Company Number: DE-ROCHE-1145421

PATIENT

DRUGS (1)
  1. RITUXIMAB. [Suspect]
     Active Substance: RITUXIMAB
     Indication: CHRONIC GRAFT VERSUS HOST DISEASE
     Dosage: 4 DOSES
     Route: 041

REACTIONS (5)
  - Pulmonary embolism [Fatal]
  - Viral infection [Unknown]
  - Fungal infection [Unknown]
  - Infection [Fatal]
  - Bacterial infection [Unknown]
